FAERS Safety Report 6097483-0 (Version None)
Quarter: 2009Q1

REPORT INFORMATION
  Report Type: 
  Country: None (occurrence: None)
  Receive Date: 20090227
  Receipt Date: 20080721
  Transmission Date: 20090719
  Serious: No
  Sender: FDA-Public Use
  Company Number: A0739651A

PATIENT
  Sex: Female

DRUGS (3)
  1. IMITREX [Suspect]
     Indication: MIGRAINE
     Route: 065
  2. ADVIL SINUS [Suspect]
     Indication: MIGRAINE
  3. FLEXERIL [Suspect]
     Indication: MIGRAINE

REACTIONS (1)
  - MIGRAINE [None]
